FAERS Safety Report 9889193 (Version 2)
Quarter: 2014Q2

REPORT INFORMATION
  Report Type: Spontaneous
  Country: US (occurrence: None)
  Receive Date: 20140207
  Receipt Date: 20140409
  Transmission Date: 20141212
  Serious: Yes (Other)
  Sender: FDA-Public Use
  Company Number: A1059563A

PATIENT
  Age: 74 Year
  Sex: Male

DRUGS (1)
  1. METHYLCELLULOSE [Suspect]
     Indication: PRODUCT USED FOR UNKNOWN INDICATION
     Route: 048

REACTIONS (3)
  - Concomitant disease aggravated [None]
  - Coeliac disease [None]
  - Abdominal pain upper [None]
